FAERS Safety Report 11104714 (Version 1)
Quarter: 2015Q2

REPORT INFORMATION
  Report Type: Spontaneous
  Country: GB (occurrence: GB)
  Receive Date: 20150511
  Receipt Date: 20150511
  Transmission Date: 20150821
  Serious: Yes (Other)
  Sender: FDA-Public Use
  Company Number: GB-WATSON-2015-09443

PATIENT
  Age: 29 Year
  Sex: Female
  Weight: 80.73 kg

DRUGS (1)
  1. MIRTAZAPINE (UNKNOWN) [Suspect]
     Active Substance: MIRTAZAPINE
     Indication: ANXIETY
     Dosage: 15 MG, UNKNOWN
     Route: 048
     Dates: start: 20150409, end: 20150418

REACTIONS (1)
  - Dissociation [Recovering/Resolving]

NARRATIVE: CASE EVENT DATE: 20150410
